FAERS Safety Report 4985283-1 (Version None)
Quarter: 2006Q2

REPORT INFORMATION
  Report Type: 
  Country: None (occurrence: None)
  Receive Date: 20060427
  Receipt Date: 20060421
  Transmission Date: 20061013
  Serious: Yes (Other)
  Sender: FDA-Public Use
  Company Number: CH-MERCK-0604CHE00009M

PATIENT
  Age: 36 Year
  Sex: Female

DRUGS (1)
  1. NOROXIN [Suspect]
     Indication: URINARY TRACT INFECTION
     Route: 048
     Dates: start: 20040908, end: 20040915

REACTIONS (6)
  - ABORTION INDUCED [None]
  - BRAIN MALFORMATION [None]
  - CHROMOSOME ABNORMALITY [None]
  - CLEFT PALATE [None]
  - DRUG EXPOSURE DURING PREGNANCY [None]
  - ROAD TRAFFIC ACCIDENT [None]
